FAERS Safety Report 25260177 (Version 1)
Quarter: 2025Q2

REPORT INFORMATION
  Report Type: Spontaneous
  Country: US (occurrence: None)
  Receive Date: 20250501
  Receipt Date: 20250501
  Transmission Date: 20250717
  Serious: Yes (Hospitalization)
  Sender: FDA-CTU
  Company Number: None

PATIENT
  Age: 94 Year
  Sex: Male
  Weight: 78 kg

DRUGS (1)
  1. INSULIN ASPART [Suspect]
     Active Substance: INSULIN ASPART
     Indication: Diabetes mellitus

REACTIONS (2)
  - Hypoglycaemia [None]
  - Loss of consciousness [None]

NARRATIVE: CASE EVENT DATE: 20240606
